FAERS Safety Report 19776545 (Version 1)
Quarter: 2021Q3

REPORT INFORMATION
  Report Type: Spontaneous
  Country: FR (occurrence: FR)
  Receive Date: 20210901
  Receipt Date: 20210901
  Transmission Date: 20211014
  Serious: Yes (Other)
  Sender: FDA-Public Use
  Company Number: FR-TEVA-2021-FR-1946452

PATIENT
  Age: 64 Year
  Sex: Male

DRUGS (5)
  1. ALLOPURINOL. [Concomitant]
     Active Substance: ALLOPURINOL
     Dosage: STARTED 5 YEARS AGO
     Dates: start: 2016
  2. PERINDOPRIL [Suspect]
     Active Substance: PERINDOPRIL
     Dosage: STARTED TEN YEARS AGO
     Route: 065
     Dates: start: 2011, end: 20210820
  3. ATENOLOL TEVA [Suspect]
     Active Substance: ATENOLOL
     Indication: CARDIAC DISORDER
     Dosage: THERAPY DURATION?13 OR 15 YEARS
     Route: 065
  4. LIPTRUZET [Concomitant]
     Active Substance: ATORVASTATIN CALCIUM\EZETIMIBE
     Indication: HYPERCHOLESTEROLAEMIA
     Dosage: STARTED ABOUT TEN YEARS AGO
     Dates: start: 2011
  5. KARDEGIC [Concomitant]
     Active Substance: ASPIRIN DL-LYSINE
     Dosage: STARTED 5 YEARS AGO
     Dates: start: 2016

REACTIONS (2)
  - Dermatitis acneiform [Recovering/Resolving]
  - Toxic skin eruption [Not Recovered/Not Resolved]

NARRATIVE: CASE EVENT DATE: 202108
